FAERS Safety Report 24550645 (Version 1)
Quarter: 2024Q4

REPORT INFORMATION
  Report Type: Spontaneous
  Country: CA (occurrence: CA)
  Receive Date: 20241025
  Receipt Date: 20241025
  Transmission Date: 20250114
  Serious: Yes (Other)
  Sender: TEVA
  Company Number: CA-TEVA-VS-3256243

PATIENT
  Age: 37 Year
  Sex: Male
  Weight: 68 kg

DRUGS (1)
  1. DEXTROAMPHETAMINE SULFATE [Suspect]
     Active Substance: DEXTROAMPHETAMINE SULFATE
     Indication: Attention deficit hyperactivity disorder
     Dosage: DOSE FORM : CAPSULE, SUSTAINED-RELEASE
     Route: 048

REACTIONS (4)
  - Nausea [Unknown]
  - Attention deficit hyperactivity disorder [Unknown]
  - Condition aggravated [Unknown]
  - Brain fog [Unknown]
